FAERS Safety Report 5575374-9 (Version None)
Quarter: 2007Q4

REPORT INFORMATION
  Report Type: 
  Country: None (occurrence: None)
  Receive Date: 20071227
  Receipt Date: 20071220
  Transmission Date: 20080405
  Serious: Yes (Other)
  Sender: FDA-Public Use
  Company Number: PHBS2007IE17475

PATIENT
  Sex: Male

DRUGS (3)
  1. NEORAL [Suspect]
     Indication: LIVER TRANSPLANT
     Dosage: 300 MG, BID
     Route: 048
  2. CELLCEPT [Concomitant]
     Indication: LIVER TRANSPLANT
     Dosage: 3 G/D
     Route: 048
  3. PREDNISOLONE [Concomitant]
     Indication: LIVER TRANSPLANT
     Route: 048

REACTIONS (3)
  - CONDITION AGGRAVATED [None]
  - DYSARTHRIA [None]
  - TARDIVE DYSKINESIA [None]
